FAERS Safety Report 8738130 (Version 6)
Quarter: 2012Q4

REPORT INFORMATION
  Report Type: 
  Country: PH (occurrence: PH)
  Receive Date: 20120823
  Receipt Date: 20121030
  Transmission Date: 20130627
  Serious: Yes (Hospitalization, Disabling)
  Sender: FDA-Public Use
  Company Number: PH-009507513-1207PHL008352

PATIENT
  Sex: Female

DRUGS (9)
  1. REBETOL [Suspect]
     Indication: HEPATITIS C
     Dosage: 800 mg, qd
     Route: 048
     Dates: end: 20120802
  2. REBETOL [Suspect]
     Dosage: 400 UNK, UNK
     Dates: start: 20120802
  3. REBETOL [Suspect]
     Dosage: 200 mg, qd
     Route: 048
  4. PEG-INTRON [Suspect]
     Indication: HEPATITIS C
     Dosage: 80 Microgram, qw, VIAL
     Route: 058
     Dates: start: 20120628
  5. CARNITINE OROTATE [Concomitant]
     Dosage: UNK, bid
     Dates: start: 20120615
  6. LEVOFLOXACIN [Concomitant]
     Indication: URINARY TRACT INFECTION
     Dosage: 500 mg, UNK
     Dates: start: 20120816, end: 20120818
  7. DOMPERIDONE [Concomitant]
     Indication: PROPHYLAXIS OF NAUSEA AND VOMITING
     Dosage: UNK
     Dates: start: 20120816
  8. CEFUROXIME [Concomitant]
     Indication: URINARY TRACT INFECTION
     Dosage: 1000 mg, UNK
     Dates: start: 20120712, end: 20120719
  9. DIBENCOZIDE [Concomitant]
     Indication: DECREASED APPETITE
     Dosage: 3 mg, UNK
     Dates: start: 20120823

REACTIONS (9)
  - Fatigue [Recovered/Resolved]
  - Asthenia [Recovering/Resolving]
  - Depression [Recovering/Resolving]
  - Hypokalaemia [Not Recovered/Not Resolved]
  - Vomiting [Recovering/Resolving]
  - Anaemia [Recovering/Resolving]
  - Suicidal behaviour [Recovering/Resolving]
  - Red blood cell count decreased [Recovering/Resolving]
  - Urinary tract infection [Recovering/Resolving]
